FAERS Safety Report 5326935-3 (Version None)
Quarter: 2007Q2

REPORT INFORMATION
  Report Type: 
  Country: None (occurrence: None)
  Receive Date: 20070511
  Receipt Date: 20070430
  Transmission Date: 20071010
  Serious: Yes (Other)
  Sender: FDA-Public Use
  Company Number: 070055

PATIENT
  Age: 33 Year
  Sex: Female
  Weight: 71.6683 kg

DRUGS (3)
  1. POLYETHYLENE GLYCOL 3350 [Suspect]
     Indication: CONSTIPATION
     Dosage: 17G/8OZ, WEEKLY, PO
     Route: 048
     Dates: start: 20070427
  2. ADVAIR DISKUS 100/50 [Concomitant]
  3. FLONASE [Concomitant]

REACTIONS (5)
  - ANAPHYLACTIC REACTION [None]
  - BURNING SENSATION [None]
  - FATIGUE [None]
  - HEADACHE [None]
  - VOMITING [None]
